FAERS Safety Report 4714604-X (Version None)
Quarter: 2005Q3

REPORT INFORMATION
  Report Type: 
  Country: None (occurrence: None)
  Receive Date: 20050714
  Receipt Date: 20050714
  Transmission Date: 20060218
  Serious: Yes (Life-Threatening, Hospitalization, Disabling)
  Sender: FDA-Public Use
  Company Number: None

PATIENT
  Age: 65 Year
  Sex: Male
  Weight: 68.0396 kg

DRUGS (3)
  1. TEGRETOL [Suspect]
     Indication: TEMPOROMANDIBULAR JOINT SYNDROME
     Dosage: 150 MG TWICE A DAY ORAL
     Route: 048
     Dates: start: 20050510, end: 20050615
  2. TEGRETOL [Suspect]
     Indication: TEMPOROMANDIBULAR JOINT SYNDROME
     Dosage: 300 MG TWICE A DAY ORAL
     Route: 048
     Dates: start: 20050615, end: 20050630
  3. STEROIDS [Concomitant]

REACTIONS (10)
  - DEPRESSION [None]
  - DRY SKIN [None]
  - EXFOLIATIVE RASH [None]
  - HYPERSENSITIVITY [None]
  - OEDEMA PERIPHERAL [None]
  - PSORIASIS [None]
  - RASH ERYTHEMATOUS [None]
  - SKIN DISCOLOURATION [None]
  - SWELLING [None]
  - SWOLLEN TONGUE [None]
